FAERS Safety Report 23399288 (Version 2)
Quarter: 2024Q2

REPORT INFORMATION
  Report Type: Report from Study
  Country: US (occurrence: US)
  Receive Date: 20240113
  Receipt Date: 20240401
  Transmission Date: 20240716
  Serious: Yes (Hospitalization, Other)
  Sender: FDA-Public Use
  Company Number: US-ABBVIE-5582769

PATIENT
  Sex: Male

DRUGS (1)
  1. SKYRIZI [Suspect]
     Active Substance: RISANKIZUMAB-RZAA
     Indication: Psoriasis
     Route: 058
     Dates: start: 20231107

REACTIONS (3)
  - Gastrointestinal haemorrhage [Recovering/Resolving]
  - Nephrolithiasis [Not Recovered/Not Resolved]
  - Perforated ulcer [Recovering/Resolving]
